FAERS Safety Report 8910008 (Version 2)
Quarter: 2013Q1

REPORT INFORMATION
  Report Type: Report from Study
  Country: BR (occurrence: BR)
  Receive Date: 20121115
  Receipt Date: 20130103
  Transmission Date: 20140127
  Serious: Yes (Hospitalization, Other)
  Sender: FDA-Public Use
  Company Number: BR-ABBOTT-12P-020-1006558-00

PATIENT
  Age: 61 Year
  Sex: Male
  Weight: 86 kg

DRUGS (7)
  1. HUMIRA [Suspect]
     Indication: PSORIATIC ARTHROPATHY
     Route: 058
     Dates: start: 20070117, end: 20091030
  2. HUMIRA [Suspect]
     Indication: PSORIASIS
  3. UNKNOWN DRUG [Concomitant]
     Indication: PSORIASIS
     Route: 048
     Dates: start: 201111
  4. ENALAPRIL [Concomitant]
     Indication: HYPERTENSION
     Dates: start: 2005
  5. SAW PALMETTO (PROSTAT) [Concomitant]
     Indication: BENIGN PROSTATIC HYPERPLASIA
  6. LOSARTAN [Concomitant]
     Indication: HYPERTENSION
     Dates: start: 2007
  7. PARACETAMOL [Concomitant]
     Indication: PAIN
     Dosage: SPORADICALLY

REACTIONS (2)
  - Gastrointestinal carcinoma [Recovered/Resolved]
  - Large intestine polyp [Unknown]
